FAERS Safety Report 16327548 (Version 1)
Quarter: 2019Q2

REPORT INFORMATION
  Report Type: Spontaneous
  Country: CA (occurrence: CA)
  Receive Date: 20190517
  Receipt Date: 20190517
  Transmission Date: 20190711
  Serious: Yes (Other)
  Sender: FDA-Public Use
  Company Number: CA-SHIRE-CA201911057

PATIENT

DRUGS (1)
  1. C1 INHIBITOR (HUMAN) [Suspect]
     Active Substance: HUMAN C1-ESTERASE INHIBITOR
     Indication: HEREDITARY ANGIOEDEMA
     Dosage: 1500 INTERNATIONAL UNIT, 2X A WEEK
     Route: 058

REACTIONS (4)
  - Prescribed overdose [Unknown]
  - Incorrect route of product administration [Unknown]
  - Hereditary angioedema [Unknown]
  - Food allergy [Unknown]
